FAERS Safety Report 6181889-5 (Version None)
Quarter: 2009Q2

REPORT INFORMATION
  Report Type: 
  Country: None (occurrence: None)
  Receive Date: 20090506
  Receipt Date: 20090429
  Transmission Date: 20091009
  Serious: Yes (Hospitalization)
  Sender: FDA-Public Use
  Company Number: DE-MERCK-0903DEU00036

PATIENT
  Sex: Female

DRUGS (2)
  1. VYTORIN [Suspect]
     Route: 048
  2. DICLOFENAC [Suspect]
     Route: 048
     Dates: start: 20090228, end: 20090228

REACTIONS (2)
  - DRUG INTERACTION [None]
  - MYALGIA [None]
